FAERS Safety Report 25673893 (Version 2)
Quarter: 2025Q3

REPORT INFORMATION
  Report Type: Report from Study
  Country: US (occurrence: US)
  Receive Date: 20250813
  Receipt Date: 20250926
  Transmission Date: 20251021
  Serious: Yes (Other)
  Sender: SUNOVION
  Company Number: US-SUMITOMO PHARMA SWITZERLAND GMBH-2024SPA002350

PATIENT
  Age: 73 Year
  Sex: Male

DRUGS (17)
  1. ORGOVYX [Suspect]
     Active Substance: RELUGOLIX
     Indication: Prostate cancer
     Dosage: 120 MG, QD
     Route: 048
     Dates: start: 20240830
  2. IRON [Concomitant]
     Active Substance: IRON
     Indication: Asthenia
  3. ASPIRIN [Concomitant]
     Active Substance: ASPIRIN
  4. ATORVASTATIN CALCIUM [Concomitant]
     Active Substance: ATORVASTATIN CALCIUM
  5. CEFDINIR [Concomitant]
     Active Substance: CEFDINIR
  6. CEPHALEXIN [Concomitant]
     Active Substance: CEPHALEXIN
  7. CLOPIDOGREL [Concomitant]
     Active Substance: CLOPIDOGREL BISULFATE
  8. CYCLOBENZAPRINE [Concomitant]
     Active Substance: CYCLOBENZAPRINE
  9. EZETIMIBE [Concomitant]
     Active Substance: EZETIMIBE
  10. HYDROCHLOROTHIAZIDE [Concomitant]
     Active Substance: HYDROCHLOROTHIAZIDE
  11. LEVOFLOXACIN [Concomitant]
     Active Substance: LEVOFLOXACIN
  12. Metamucil 4 in 1 fiber [Concomitant]
  13. METOPROLOL SUCCINATE [Concomitant]
     Active Substance: METOPROLOL SUCCINATE
  14. MIRABEGRON [Concomitant]
     Active Substance: MIRABEGRON
  15. ROSUVASTATIN [Concomitant]
     Active Substance: ROSUVASTATIN
  16. VITAMIN B12 [Concomitant]
     Active Substance: CYANOCOBALAMIN
  17. Coricidin [Concomitant]

REACTIONS (18)
  - Loss of consciousness [Unknown]
  - Cataract [Unknown]
  - Sinusitis [Unknown]
  - Muscular weakness [Unknown]
  - Melanocytic naevus [Unknown]
  - Dizziness postural [Unknown]
  - Strabismus [Unknown]
  - Diplopia [Unknown]
  - Glomerular filtration rate decreased [Unknown]
  - Joint noise [Unknown]
  - Urinary tract infection [Unknown]
  - Rash [Unknown]
  - Myalgia [Unknown]
  - Nausea [Unknown]
  - Anaemia [Unknown]
  - Asthenia [Unknown]
  - Fatigue [Unknown]
  - Incorrect dose administered [Recovered/Resolved]
